FAERS Safety Report 21758064 (Version 2)
Quarter: 2023Q1

REPORT INFORMATION
  Report Type: Report from Study
  Country: CA (occurrence: CA)
  Receive Date: 20221221
  Receipt Date: 20230206
  Transmission Date: 20230418
  Serious: Yes (Hospitalization)
  Sender: FDA-Public Use
  Company Number: CA-JNJFOC-20221235103

PATIENT
  Age: 74 Year
  Sex: Male
  Weight: 69.008 kg

DRUGS (2)
  1. TREMFYA [Suspect]
     Active Substance: GUSELKUMAB
     Indication: Psoriasis
     Route: 058
     Dates: start: 20220713
  2. TREMFYA [Suspect]
     Active Substance: GUSELKUMAB

REACTIONS (4)
  - Cardiac arrest [Recovering/Resolving]
  - Pulmonary embolism [Recovering/Resolving]
  - Cerebrovascular accident [Recovering/Resolving]
  - COVID-19 [Unknown]

NARRATIVE: CASE EVENT DATE: 20220101
